FAERS Safety Report 7984617-3 (Version None)
Quarter: 2011Q4

REPORT INFORMATION
  Report Type: 
  Country: None (occurrence: None)
  Receive Date: 20111216
  Receipt Date: 20111206
  Transmission Date: 20120403
  Serious: Yes (Hospitalization)
  Sender: FDA-Public Use
  Company Number: US-JNJFOC-20111011651

PATIENT
  Sex: Female
  Weight: 70.4 kg

DRUGS (2)
  1. INFLIXIMAB, RECOMBINANT [Suspect]
     Route: 042
     Dates: start: 20060407
  2. INFLIXIMAB, RECOMBINANT [Suspect]
     Indication: INFLAMMATORY BOWEL DISEASE
     Route: 042
     Dates: start: 20100823

REACTIONS (4)
  - INTESTINAL PERFORATION [None]
  - CROHN'S DISEASE [None]
  - ABDOMINAL ABSCESS [None]
  - GASTROINTESTINAL FISTULA [None]
